FAERS Safety Report 8395434-7 (Version None)
Quarter: 2012Q2

REPORT INFORMATION
  Report Type: 
  Country: None (occurrence: None)
  Receive Date: 20120525
  Receipt Date: 20120525
  Transmission Date: 20120825
  Serious: No
  Sender: FDA-Public Use
  Company Number: None

PATIENT
  Sex: Female

DRUGS (1)
  1. FOLIC ACID [Suspect]
     Dosage: 1MG DAILY BY MOUTH
     Route: 048

REACTIONS (1)
  - SWELLING FACE [None]
